FAERS Safety Report 5223006-1 (Version None)
Quarter: 2007Q1

REPORT INFORMATION
  Report Type: 
  Country: None (occurrence: None)
  Receive Date: 20070124
  Receipt Date: 20070110
  Transmission Date: 20070707
  Serious: Yes (Hospitalization)
  Sender: FDA-Public Use
  Company Number: 2006-148959-NL

PATIENT
  Age: 35 Year
  Sex: Female

DRUGS (2)
  1. ETONOGESTREL [Suspect]
     Indication: CONTRACEPTION
     Dosage: DF
     Dates: start: 20040830, end: 20061108
  2. SIBUTRAMINE [Concomitant]

REACTIONS (4)
  - DRUG EXPOSURE DURING PREGNANCY [None]
  - MENOMETRORRHAGIA [None]
  - PREGNANCY WITH IMPLANT CONTRACEPTIVE [None]
  - RUPTURED ECTOPIC PREGNANCY [None]
